FAERS Safety Report 17676369 (Version 2)
Quarter: 2020Q2

REPORT INFORMATION
  Report Type: Spontaneous
  Country: IT (occurrence: IT)
  Receive Date: 20200416
  Receipt Date: 20200429
  Transmission Date: 20200714
  Serious: Yes (Other)
  Sender: FDA-Public Use
  Company Number: IT-AUROBINDO-AUR-APL-2020-018717

PATIENT
  Age: 55 Year
  Sex: Male

DRUGS (5)
  1. TRESIBA [Suspect]
     Active Substance: INSULIN DEGLUDEC
     Indication: TYPE 2 DIABETES MELLITUS
     Dosage: 26 INTERNATIONAL UNIT, ONCE A DAY (FOR EVERY 21 HRS AT BED TIME 9 PM)
     Route: 065
  2. METFORMIN [Suspect]
     Active Substance: METFORMIN HYDROCHLORIDE
     Indication: TYPE 2 DIABETES MELLITUS
     Dosage: 850 MILLIGRAM, TWO TIMES A DAY, (ON LUNCH AND DINNER)
     Route: 065
  3. INSULIN LISPRO [Suspect]
     Active Substance: INSULIN LISPRO
     Indication: TYPE 2 DIABETES MELLITUS
     Dosage: 32 INTERNATIONAL UNIT, ONCE A DAY, (8 AT BREAKFAST, 10 FOR LUNCH, 14 FOR DINNER)
     Route: 065
  4. INSULIN LISPRO [Suspect]
     Active Substance: INSULIN LISPRO
     Dosage: 42 INTERNATIONAL UNIT, ONCE A DAY, (10 BREAKFAST + 14 LUNCH + 18 DINNER IU)
     Route: 065
  5. ATORVASTATIN [Suspect]
     Active Substance: ATORVASTATIN
     Indication: PRODUCT USED FOR UNKNOWN INDICATION
     Dosage: 10 MILLIGRAM, ONCE A DAY (ON EVENING)
     Route: 065

REACTIONS (1)
  - Hyperglycaemia [Unknown]
